FAERS Safety Report 5371384-5 (Version None)
Quarter: 2007Q2

REPORT INFORMATION
  Report Type: 
  Country: None (occurrence: None)
  Receive Date: 20070615
  Receipt Date: 20060515
  Transmission Date: 20071010
  Serious: Yes (Other)
  Sender: FDA-Public Use
  Company Number: 200614338US

PATIENT
  Age: 25 Year
  Sex: Male
  Weight: 75 kg

DRUGS (4)
  1. LANTUS [Suspect]
     Indication: DIABETES MELLITUS INSULIN-DEPENDENT
     Dosage: 24 U HS
     Dates: start: 20030201
  2. METHYLPREDNISOLONE ACETATE [Suspect]
     Indication: RASH
     Dosage: 60 MG ONCE INJ
     Dates: start: 20060513, end: 20060513
  3. METHYLPREDNISOLONE (MEDROL 00049601/) [Concomitant]
  4. NOVOLOG [Concomitant]

REACTIONS (5)
  - BLOOD GLUCOSE DECREASED [None]
  - BLOOD GLUCOSE INCREASED [None]
  - EXTRASYSTOLES [None]
  - HYPERTENSION [None]
  - RASH PRURITIC [None]
